FAERS Safety Report 5603256-2 (Version None)
Quarter: 2008Q1

REPORT INFORMATION
  Report Type: 
  Country: None (occurrence: None)
  Receive Date: 20080125
  Receipt Date: 20080115
  Transmission Date: 20080703
  Serious: Yes (Hospitalization)
  Sender: FDA-Public Use
  Company Number: DE-PFIZER INC-2008005614

PATIENT
  Sex: Female

DRUGS (20)
  1. UNACID INJECTION [Suspect]
     Indication: ERYSIPELAS
     Route: 042
     Dates: start: 20030721, end: 20030728
  2. PLANUM MITE [Suspect]
     Indication: SLEEP DISORDER
     Route: 048
     Dates: start: 20030724, end: 20030727
  3. HEPARIN [Suspect]
     Indication: THROMBOSIS PROPHYLAXIS
     Route: 042
     Dates: start: 20030721, end: 20030729
  4. AQUAPHOR TABLET [Suspect]
     Indication: OEDEMA
     Route: 048
     Dates: start: 20030721, end: 20030730
  5. UNAT [Suspect]
     Indication: OEDEMA
     Route: 048
  6. ALLOPURINOL [Suspect]
     Indication: HYPERURICAEMIA
     Route: 048
  7. RAMIPRIL [Suspect]
     Indication: HYPERTENSION
     Route: 048
  8. BISOPROLOL FUMARATE [Suspect]
     Indication: OEDEMA
     Dosage: TEXT:10 MG; 5MG
     Route: 048
     Dates: start: 20030722, end: 20030727
  9. SPIRONOLACTONE [Suspect]
     Indication: HYPERURICAEMIA
     Dosage: FREQ:FREQUENCY: DAILY
     Route: 048
  10. DIGIMERCK [Suspect]
     Indication: OEDEMA
     Route: 048
  11. DIGIMERCK [Suspect]
     Indication: HYPERTENSION
  12. DIGIMERCK [Suspect]
     Indication: TACHYARRHYTHMIA
  13. MARCUMAR [Suspect]
     Indication: THROMBOSIS PROPHYLAXIS
     Route: 048
  14. CORDAREX [Suspect]
     Indication: TACHYCARDIA
     Dosage: DAILY DOSE:200MG
     Route: 048
     Dates: start: 20030721, end: 20030722
  15. SILOMAT [Suspect]
     Route: 048
  16. DIGITOXIN INJ [Suspect]
     Route: 042
     Dates: start: 20030722, end: 20030723
  17. KALINOR [Suspect]
     Route: 048
     Dates: start: 20030722, end: 20030724
  18. BELOC [Concomitant]
     Indication: HYPERTENSION
     Route: 042
     Dates: start: 20030721, end: 20030721
  19. FUROSEMIDE [Concomitant]
     Route: 042
     Dates: start: 20030721, end: 20030721
  20. VALERIANA COMP [Concomitant]
     Route: 048
     Dates: start: 20030721, end: 20030721

REACTIONS (1)
  - STEVENS-JOHNSON SYNDROME [None]
